FAERS Safety Report 20682863 (Version 1)
Quarter: 2022Q2

REPORT INFORMATION
  Report Type: Spontaneous
  Country: US (occurrence: US)
  Receive Date: 20220407
  Receipt Date: 20220407
  Transmission Date: 20220720
  Serious: No
  Sender: FDA-Public Use
  Company Number: US-TEVA-2022-US-2016896

PATIENT
  Age: 79 Year
  Sex: Female
  Weight: 86.18 kg

DRUGS (2)
  1. AIRDUO RESPICLICK [Suspect]
     Active Substance: FLUTICASONE PROPIONATE\SALMETEROL XINAFOATE
     Indication: Pulmonary congestion
     Dosage: 232-14 MCG/DOSE, 1 PUFF EVERY MORNING AND EVENING DAILY
     Route: 065
     Dates: start: 20220307
  2. AIRDUO RESPICLICK [Suspect]
     Active Substance: FLUTICASONE PROPIONATE\SALMETEROL XINAFOATE
     Indication: Cerebral congestion

REACTIONS (3)
  - Product use in unapproved indication [Unknown]
  - Dysphonia [Unknown]
  - Wrong technique in product usage process [Unknown]

NARRATIVE: CASE EVENT DATE: 20220307
